FAERS Safety Report 20648268 (Version 10)
Quarter: 2022Q4

REPORT INFORMATION
  Report Type: Spontaneous
  Country: US (occurrence: US)
  Receive Date: 20220329
  Receipt Date: 20221215
  Transmission Date: 20230112
  Serious: No
  Sender: FDA-Public Use
  Company Number: US-MMM-0WJH53TG

PATIENT
  Age: 77 Year
  Sex: Female

DRUGS (8)
  1. ZEJULA [Suspect]
     Active Substance: NIRAPARIB
     Indication: Ovarian cancer
     Dosage: 200 MG, QD
     Dates: start: 20220321
  2. ZEJULA [Suspect]
     Active Substance: NIRAPARIB
     Dosage: 200 MG, QD
     Route: 048
  3. ZEJULA [Suspect]
     Active Substance: NIRAPARIB
     Dosage: 100 MG, QD
     Route: 048
  4. ZEJULA [Suspect]
     Active Substance: NIRAPARIB
     Dosage: 100 MG, QD, PM
  5. ZEJULA [Suspect]
     Active Substance: NIRAPARIB
     Dosage: 100 MG, QD
  6. ZEJULA [Suspect]
     Active Substance: NIRAPARIB
     Dosage: 100 MG, QD
     Route: 048
  7. ZEJULA [Suspect]
     Active Substance: NIRAPARIB
     Dosage: 100 MG, QD
  8. GABAPENTIN [Suspect]
     Active Substance: GABAPENTIN
     Indication: Neuropathy peripheral
     Dosage: UNK

REACTIONS (21)
  - Pain [Unknown]
  - Arthritis [Unknown]
  - Condition aggravated [Unknown]
  - Nausea [Unknown]
  - Eructation [Unknown]
  - Flatulence [Unknown]
  - Fatigue [Not Recovered/Not Resolved]
  - Asthenia [Not Recovered/Not Resolved]
  - Constipation [Not Recovered/Not Resolved]
  - White blood cell count decreased [Unknown]
  - Headache [Unknown]
  - Emotional disorder [Unknown]
  - Insomnia [Not Recovered/Not Resolved]
  - Somnolence [Unknown]
  - Full blood count decreased [Unknown]
  - Gastric disorder [Unknown]
  - Ill-defined disorder [Unknown]
  - Nasopharyngitis [Unknown]
  - Hypertension [Unknown]
  - Bone pain [Unknown]
  - Sleep inertia [Unknown]

NARRATIVE: CASE EVENT DATE: 20220301
